FAERS Safety Report 7517194-1 (Version None)
Quarter: 2011Q2

REPORT INFORMATION
  Report Type: 
  Country: None (occurrence: None)
  Receive Date: 20110601
  Receipt Date: 20110526
  Transmission Date: 20111010
  Serious: Yes (Other)
  Sender: FDA-Public Use
  Company Number: FR-PFIZER INC-FR-WYE-G03435209

PATIENT
  Age: 58 Year
  Sex: Male
  Weight: 80 kg

DRUGS (5)
  1. HEPARIN [Concomitant]
     Dosage: UNK
     Route: 042
     Dates: start: 20090312
  2. EUPRESSYL [Concomitant]
     Dosage: UNK
     Route: 042
     Dates: start: 20090319
  3. TIGECYCLINE [Suspect]
     Indication: PERITONITIS
     Dosage: 50 MG, 2X/DAY
     Route: 042
     Dates: start: 20090320
  4. NEXIUM [Concomitant]
     Dosage: UNK
     Route: 042
     Dates: start: 20090312
  5. TEICOPLANIN [Concomitant]
     Dosage: UNK
     Route: 042
     Dates: start: 20090312

REACTIONS (1)
  - ATRIOVENTRICULAR BLOCK COMPLETE [None]
